FAERS Safety Report 10277185 (Version 1)
Quarter: 2014Q3

REPORT INFORMATION
  Report Type: Spontaneous
  Country: US (occurrence: US)
  Receive Date: 20140703
  Receipt Date: 20140703
  Transmission Date: 20150326
  Serious: No
  Sender: FDA-Public Use
  Company Number: US-ASTRAZENECA-2014SE40043

PATIENT
  Sex: Female

DRUGS (4)
  1. NEXIUM 24HR [Suspect]
     Active Substance: ESOMEPRAZOLE MAGNESIUM
     Indication: GASTROOESOPHAGEAL REFLUX DISEASE
     Dosage: UNKNOWN DOSE ONCE A DAY EVERY MORNING
     Route: 048
     Dates: start: 201405, end: 20140531
  2. UNSPECIFIED MEDICATION FOR ALLERGIES [Concomitant]
     Indication: MULTIPLE ALLERGIES
  3. UNSPECIFIED MEDICATION FOR BLOOD PRESSURE PROBLEM [Concomitant]
     Indication: BLOOD PRESSURE ABNORMAL
  4. UNSPECIFIED MEDICATIONS [Concomitant]
     Active Substance: UNSPECIFIED INGREDIENT

REACTIONS (3)
  - Intentional product misuse [Unknown]
  - Gastrooesophageal reflux disease [Not Recovered/Not Resolved]
  - Drug ineffective for unapproved indication [Not Recovered/Not Resolved]
